FAERS Safety Report 22188119 (Version 1)
Quarter: 2023Q2

REPORT INFORMATION
  Report Type: Spontaneous
  Country: FR (occurrence: FR)
  Receive Date: 20230408
  Receipt Date: 20230408
  Transmission Date: 20230721
  Serious: Yes (Death, Other)
  Sender: FDA-Public Use
  Company Number: FR-INCYTE CORPORATION-2023IN003125

PATIENT

DRUGS (6)
  1. TAFASITAMAB [Suspect]
     Active Substance: TAFASITAMAB
     Indication: Diffuse large B-cell lymphoma
     Dosage: 880 MILLIGRAM
     Route: 065
  2. FUROSEMIDE [Concomitant]
     Active Substance: FUROSEMIDE
     Indication: Cardiac disorder
     Dosage: UNK
     Route: 065
     Dates: start: 20201001
  3. ROSUVASTATIN [Concomitant]
     Active Substance: ROSUVASTATIN
     Indication: Cardiac disorder
     Dosage: UNK
     Route: 065
     Dates: start: 20201001
  4. INNOHEP [Concomitant]
     Active Substance: TINZAPARIN SODIUM
     Indication: Cardiac disorder
     Dosage: UNK
     Route: 065
     Dates: start: 20220921
  5. PANTOPRAZOLE [Concomitant]
     Active Substance: PANTOPRAZOLE
     Indication: Gastrointestinal disorder
     Dosage: UNK
     Route: 065
     Dates: start: 20220921
  6. LEVOTHYROXINE [Concomitant]
     Active Substance: LEVOTHYROXINE
     Indication: Endocrine disorder
     Dosage: UNK
     Route: 065
     Dates: start: 20200601

REACTIONS (2)
  - Diffuse large B-cell lymphoma [Fatal]
  - Disease progression [Fatal]

NARRATIVE: CASE EVENT DATE: 20230216
